FAERS Safety Report 10358586 (Version 3)
Quarter: 2014Q3

REPORT INFORMATION
  Report Type: Report from Study
  Country: BR (occurrence: BR)
  Receive Date: 20140803
  Receipt Date: 20140827
  Transmission Date: 20150326
  Serious: Yes (Hospitalization, Other)
  Sender: FDA-Public Use
  Company Number: PHHY2014BR094515

PATIENT
  Sex: Female
  Weight: 62 kg

DRUGS (2)
  1. DIOVAN [Suspect]
     Active Substance: VALSARTAN
     Dosage: 160 MG, BID (IN THE MORNING AND AT NIGHT)
  2. DIOVAN [Suspect]
     Active Substance: VALSARTAN
     Indication: HYPERTENSION
     Dosage: 320 MG IN THE MORNING DAILY
     Route: 048
     Dates: end: 201406

REACTIONS (5)
  - Blood pressure fluctuation [Recovered/Resolved]
  - Blood pressure inadequately controlled [Recovered/Resolved]
  - Brain neoplasm [Recovering/Resolving]
  - Drug ineffective [Recovered/Resolved]
  - Hypertension [Recovered/Resolved]
